FAERS Safety Report 11639776 (Version 7)
Quarter: 2017Q1

REPORT INFORMATION
  Report Type: Report from Study
  Country: CA (occurrence: CA)
  Receive Date: 20151019
  Receipt Date: 20170216
  Transmission Date: 20170428
  Serious: Yes (Other)
  Sender: FDA-Public Use
  Company Number: PHHY2013CA011273

PATIENT
  Age: 48 Year
  Sex: Male

DRUGS (6)
  1. PEGVISOMANT [Concomitant]
     Active Substance: PEGVISOMANT
     Indication: PRODUCT USED FOR UNKNOWN INDICATION
     Dosage: UNK
     Route: 065
  2. SANDOSTATIN LAR DEPOT [Suspect]
     Active Substance: OCTREOTIDE ACETATE
     Indication: ACROMEGALY
     Dosage: 30 MG, QMO
     Route: 030
     Dates: start: 20060116
  3. SANDOSTATIN LAR DEPOT [Suspect]
     Active Substance: OCTREOTIDE ACETATE
     Dosage: 20 MG, QMO
     Route: 030
  4. SANDOSTATIN LAR DEPOT [Suspect]
     Active Substance: OCTREOTIDE ACETATE
     Dosage: 30 MG, EVERY 3 WEEKS
     Route: 030
     Dates: start: 20160526
  5. SOMAVENT [Concomitant]
     Indication: PRODUCT USED FOR UNKNOWN INDICATION
     Dosage: 30 MG, QD
     Route: 065
  6. SANDOSTATIN LAR DEPOT [Suspect]
     Active Substance: OCTREOTIDE ACETATE
     Dosage: 30 MG, QMO

REACTIONS (9)
  - Needle issue [Unknown]
  - Fall [Unknown]
  - Ankle fracture [Unknown]
  - Body temperature decreased [Unknown]
  - Nasopharyngitis [Unknown]
  - Joint injury [Unknown]
  - Blood growth hormone increased [Unknown]
  - Inappropriate schedule of drug administration [Unknown]
  - Blood pressure increased [Unknown]

NARRATIVE: CASE EVENT DATE: 20151013
